FAERS Safety Report 6582584-0 (Version None)
Quarter: 2010Q1

REPORT INFORMATION
  Report Type: 
  Country: None (occurrence: None)
  Receive Date: 20100212
  Receipt Date: 20100212
  Transmission Date: 20100710
  Serious: Yes (Hospitalization)
  Sender: FDA-Public Use
  Company Number: None

PATIENT
  Age: 63 Year
  Sex: Male

DRUGS (4)
  1. METHADONE HCL [Suspect]
     Indication: DEPRESSION
     Dosage: 10 MG UD PO 20 MG EVERY DAY PO
     Route: 048
     Dates: start: 20091116, end: 20091117
  2. METHADONE HCL [Suspect]
     Indication: SUBSTANCE ABUSE
     Dosage: 10 MG UD PO 20 MG EVERY DAY PO
     Route: 048
     Dates: start: 20091116, end: 20091117
  3. METHADONE HCL [Suspect]
     Indication: DEPRESSION
     Dosage: 10 MG UD PO 20 MG EVERY DAY PO
     Route: 048
     Dates: start: 20091029, end: 20091127
  4. METHADONE HCL [Suspect]
     Indication: SUBSTANCE ABUSE
     Dosage: 10 MG UD PO 20 MG EVERY DAY PO
     Route: 048
     Dates: start: 20091029, end: 20091127

REACTIONS (4)
  - BLOOD CREATINE PHOSPHOKINASE INCREASED [None]
  - BLOOD CREATININE INCREASED [None]
  - DRUG INTERACTION [None]
  - SEROTONIN SYNDROME [None]
